FAERS Safety Report 14551933 (Version 5)
Quarter: 2020Q2

REPORT INFORMATION
  Report Type: Spontaneous
  Country: US (occurrence: US)
  Receive Date: 20180220
  Receipt Date: 20200528
  Transmission Date: 20200713
  Serious: Yes (Hospitalization, Other)
  Sender: FDA-Public Use
  Company Number: US-PFIZER INC-2018069455

PATIENT
  Age: 66 Year
  Sex: Female
  Weight: 58 kg

DRUGS (2)
  1. IBRANCE [Suspect]
     Active Substance: PALBOCICLIB
     Dosage: 75 MG, 1X/DAY
     Route: 048
     Dates: start: 20190514
  2. IBRANCE [Suspect]
     Active Substance: PALBOCICLIB
     Indication: BREAST CANCER METASTATIC
     Dosage: 75 MG, 1X/DAY
     Route: 048
     Dates: start: 2017, end: 201809

REACTIONS (10)
  - Osteomyelitis [Recovered/Resolved]
  - Balance disorder [Recovered/Resolved]
  - Clostridium difficile infection [Unknown]
  - Pyrexia [Recovered/Resolved]
  - Urinary tract infection [Unknown]
  - Subcutaneous abscess [Recovered/Resolved]
  - Fall [Recovered/Resolved]
  - Malaise [Recovered/Resolved]
  - Tooth disorder [Not Recovered/Not Resolved]
  - Tremor [Recovered/Resolved]
